FAERS Safety Report 25543864 (Version 1)
Quarter: 2025Q3

REPORT INFORMATION
  Report Type: Spontaneous
  Country: US (occurrence: US)
  Receive Date: 20250711
  Receipt Date: 20250711
  Transmission Date: 20251020
  Serious: No
  Sender: PFIZER
  Company Number: US-PFIZER INC-202500098484

PATIENT
  Age: 75 Year
  Sex: Female

DRUGS (14)
  1. XELJANZ [Suspect]
     Active Substance: TOFACITINIB CITRATE
  2. ALBUTEROL SULFATE [Concomitant]
     Active Substance: ALBUTEROL SULFATE
  3. AMITRIPTYLINE\PERPHENAZINE [Concomitant]
     Active Substance: AMITRIPTYLINE\PERPHENAZINE
  4. FLUTICASONE PROPIONATE [Concomitant]
     Active Substance: FLUTICASONE PROPIONATE
  5. PAROXETINE [Concomitant]
     Active Substance: PAROXETINE
  6. PAROXETINE [Concomitant]
     Active Substance: PAROXETINE
  7. ROSUVASTATIN CALCIUM [Concomitant]
     Active Substance: ROSUVASTATIN CALCIUM
  8. TIOTROPIUM [Concomitant]
     Active Substance: TIOTROPIUM
  9. OMEPRAZOLE SODIUM [Concomitant]
     Active Substance: OMEPRAZOLE SODIUM
  10. CALCIUM [Concomitant]
     Active Substance: CALCIUM
  11. VITAMIN D3 [Concomitant]
     Active Substance: CHOLECALCIFEROL
  12. MUCINEX [Concomitant]
     Active Substance: GUAIFENESIN
  13. LACTULOSE [Concomitant]
     Active Substance: LACTULOSE
  14. MELATONIN [Concomitant]
     Active Substance: MELATONIN

REACTIONS (1)
  - Pain [Unknown]
